FAERS Safety Report 7475531-0 (Version None)
Quarter: 2011Q2

REPORT INFORMATION
  Report Type: 
  Country: None (occurrence: None)
  Receive Date: 20110512
  Receipt Date: 20110509
  Transmission Date: 20111010
  Serious: Yes (Death, Other)
  Sender: FDA-Public Use
  Company Number: PHHY2011JP39238

PATIENT
  Sex: Female

DRUGS (14)
  1. AMLODIPINE BESYLATE [Concomitant]
     Indication: HYPERTENSION
     Dosage: 5 MG, UNK
     Route: 048
     Dates: start: 20050217
  2. TAKEPRON [Concomitant]
     Dosage: 15 MG, UNK
     Route: 048
     Dates: start: 20081210
  3. TAKEPRON [Concomitant]
     Dosage: 30 MG, UNK
     Route: 048
     Dates: end: 20110330
  4. ULCERLMIN [Concomitant]
     Dosage: 30 ML, UNK
     Route: 048
     Dates: start: 20070711, end: 20100401
  5. RISPERDAL [Concomitant]
     Dosage: 0.3 G, UNK
     Route: 048
     Dates: start: 20050813
  6. MUCOSOLVAN [Concomitant]
     Dosage: 18 ML, UNK
     Route: 048
     Dates: start: 20060405
  7. TANATRIL [Concomitant]
     Indication: HYPERTENSION
     Dosage: 5 MG, UNK
     Route: 048
     Dates: start: 20080430, end: 20090415
  8. ASPIRIN [Concomitant]
     Dosage: 100 MG, UNK
     Route: 048
     Dates: start: 20050813
  9. FERROUS CITRATE [Concomitant]
     Dosage: 4.8 MG, UNK
     Route: 048
     Dates: start: 20070523
  10. HOKUNALIN [Concomitant]
     Dosage: 2 MG, TID
     Route: 062
     Dates: start: 20060322
  11. CLEANAL [Concomitant]
     Dosage: 15 ML, UNK
     Route: 048
     Dates: start: 20060104, end: 20100616
  12. GASTER D [Concomitant]
     Dosage: 40 MG, UNK
     Route: 048
     Dates: start: 20070711, end: 20081210
  13. ONON [Concomitant]
     Dosage: 4.5 MG, UNK
     Route: 048
     Dates: start: 20060215
  14. DIOVAN [Suspect]
     Dosage: 40 MG, QD
     Route: 048
     Dates: start: 20090415

REACTIONS (2)
  - DEATH [None]
  - HEART RATE INCREASED [None]
